FAERS Safety Report 6709555-5 (Version None)
Quarter: 2010Q2

REPORT INFORMATION
  Report Type: 
  Country: None (occurrence: None)
  Receive Date: 20100504
  Receipt Date: 20100421
  Transmission Date: 20101027
  Serious: Yes (Death, Hospitalization)
  Sender: FDA-Public Use
  Company Number: GB-ROCHE-606902

PATIENT
  Sex: Female
  Weight: 79.1 kg

DRUGS (6)
  1. BEVACIZUMAB [Suspect]
     Route: 042
     Dates: start: 20081003
  2. BEVACIZUMAB [Suspect]
     Dosage: DATE OF MOST RECENT ADMINISTRATION 30 JAN 2009
     Route: 042
  3. CARBOPLATIN [Suspect]
     Dosage: LAST DOSE PRIOR TO SAE 05 DECEMBER 2008
     Route: 042
     Dates: start: 20081003
  4. CARBOPLATIN [Suspect]
     Dosage: DATE OF MOST RECENT ADMINISTRATION 30 JAN 2009
     Route: 042
  5. PACLITAXEL [Suspect]
     Dosage: LAST DOSE PRIOR TO SAE: 05 DECEMBER 2008
     Route: 042
     Dates: start: 20081006
  6. PACLITAXEL [Suspect]
     Dosage: DATE OF MOST RECENT ADMINISTRATION 30 JAN 2009. FORM: INFUSION
     Route: 042

REACTIONS (3)
  - ABDOMINAL PAIN [None]
  - DEATH [None]
  - GENITOURINARY TRACT INFECTION [None]
